FAERS Safety Report 7110562-1 (Version None)
Quarter: 2010Q4

REPORT INFORMATION
  Report Type: 
  Country: None (occurrence: None)
  Receive Date: 20101118
  Receipt Date: 20101109
  Transmission Date: 20110411
  Serious: Yes (Hospitalization)
  Sender: FDA-Public Use
  Company Number: SE-ABBOTT-10P-150-0684649-00

PATIENT
  Sex: Female

DRUGS (5)
  1. AKINETON [Suspect]
     Indication: PRODUCT USED FOR UNKNOWN INDICATION
     Dosage: 4MG DAILY
     Route: 048
     Dates: start: 20100801, end: 20100815
  2. RISPERDAL CONSTA [Concomitant]
     Indication: PSYCHOTIC DISORDER
     Dosage: POWDER AND SOLVENT FOR PROLONGED- RELEASE SUSPENSION FOR INJECTION
     Route: 050
  3. SIMVASTATIN [Concomitant]
     Indication: PRODUCT USED FOR UNKNOWN INDICATION
  4. ACETAMINOPHEN [Concomitant]
     Indication: PRODUCT USED FOR UNKNOWN INDICATION
  5. TROMBYL [Concomitant]
     Indication: PRODUCT USED FOR UNKNOWN INDICATION

REACTIONS (2)
  - HALLUCINATION [None]
  - URINARY RETENTION [None]
